FAERS Safety Report 8374478-5 (Version None)
Quarter: 2012Q2

REPORT INFORMATION
  Report Type: 
  Country: None (occurrence: None)
  Receive Date: 20120521
  Receipt Date: 20120517
  Transmission Date: 20120825
  Serious: Yes (Other)
  Sender: FDA-Public Use
  Company Number: CHPA2012US010564

PATIENT
  Age: 62 Year
  Sex: Female

DRUGS (3)
  1. VITAMINS NOS [Concomitant]
  2. PREVACID 24 HR [Suspect]
     Indication: GASTROOESOPHAGEAL REFLUX DISEASE
     Dosage: 15 MG, QD
     Route: 048
     Dates: start: 20110801
  3. WELCHOL [Suspect]
     Indication: BLOOD CHOLESTEROL INCREASED
     Dosage: 625 MG, UNK
     Dates: start: 20120427

REACTIONS (7)
  - GASTROINTESTINAL PAIN [None]
  - OFF LABEL USE [None]
  - BRONCHIAL SECRETION RETENTION [None]
  - TREATMENT NONCOMPLIANCE [None]
  - CONSTIPATION [None]
  - INCORRECT DRUG ADMINISTRATION DURATION [None]
  - DISEASE RECURRENCE [None]
